FAERS Safety Report 9049312 (Version 1)
Quarter: 2013Q1

REPORT INFORMATION
  Report Type: Report from Study
  Country: FR (occurrence: FR)
  Receive Date: 20130205
  Receipt Date: 20130205
  Transmission Date: 20140127
  Serious: Yes (Hospitalization)
  Sender: FDA-Public Use
  Company Number: FR-ROCHE-777019

PATIENT
  Age: 49 None
  Sex: Male

DRUGS (2)
  1. BEVACIZUMAB [Suspect]
     Indication: METASTATIC RENAL CELL CARCINOMA
     Dosage: FREQUENCY PER PROTOCOL, 1 PER 2 WEEK, PER 28 DAY CYCLE
     Route: 041
  2. PAZOPANIB [Suspect]
     Indication: METASTATIC RENAL CELL CARCINOMA
     Dosage: DAILY
     Route: 048

REACTIONS (1)
  - Neuralgia [Not Recovered/Not Resolved]
